FAERS Safety Report 21674500 (Version 1)
Quarter: 2022Q4

REPORT INFORMATION
  Report Type: Spontaneous
  Country: US (occurrence: None)
  Receive Date: 20221201
  Receipt Date: 20221201
  Transmission Date: 20230113
  Serious: Yes (Other)
  Sender: FDA-Public Use
  Company Number: None

PATIENT
  Age: 66 Year
  Sex: Female
  Weight: 58.5 kg

DRUGS (6)
  1. CLENPIQ [Suspect]
     Active Substance: ANHYDROUS CITRIC ACID\MAGNESIUM OXIDE\SODIUM PICOSULFATE
     Indication: Bowel preparation
     Dosage: OTHER QUANTITY : 160 ML;?OTHER FREQUENCY : TWICE;?
     Route: 048
     Dates: start: 20221130, end: 20221201
  2. MELOXICAM [Concomitant]
     Active Substance: MELOXICAM
  3. Cyclobenzapine [Concomitant]
  4. Yuvafem vaginal suppository [Concomitant]
  5. VITAMINS [Concomitant]
     Active Substance: VITAMINS
  6. VITAMIN D [Concomitant]
     Active Substance: VITAMIN D NOS

REACTIONS (5)
  - Product taste abnormal [None]
  - Vomiting projectile [None]
  - Headache [None]
  - Palpitations [None]
  - Illness [None]

NARRATIVE: CASE EVENT DATE: 20221201
